FAERS Safety Report 6595840-7 (Version None)
Quarter: 2010Q1

REPORT INFORMATION
  Report Type: 
  Country: None (occurrence: None)
  Receive Date: 20100216
  Receipt Date: 20100128
  Transmission Date: 20100710
  Serious: Yes (Hospitalization, Other)
  Sender: FDA-Public Use
  Company Number: AE10-0007

PATIENT
  Age: 47 Year
  Sex: Female

DRUGS (4)
  1. BUPROPION HCL [Suspect]
     Indication: DEPRESSION
     Dosage: 150 MG/DAY, ORAL
     Route: 048
     Dates: start: 20091120, end: 20091204
  2. BUPROPION HCL [Suspect]
     Indication: DEPRESSION
     Dosage: 300 MG/DAY, ORAL
     Route: 048
  3. CELEXA [Concomitant]
  4. DIETARY SUIPPLEMENTS [Concomitant]

REACTIONS (14)
  - AGITATION [None]
  - APHASIA [None]
  - ASTHENIA [None]
  - ATRIAL FIBRILLATION [None]
  - BLOOD PRESSURE INCREASED [None]
  - CONFUSIONAL STATE [None]
  - DIZZINESS [None]
  - FATIGUE [None]
  - HYPERHIDROSIS [None]
  - HYPOAESTHESIA [None]
  - NAUSEA [None]
  - PALPITATIONS [None]
  - PARAESTHESIA [None]
  - PRESYNCOPE [None]
